FAERS Safety Report 9607305 (Version 1)
Quarter: 2013Q3

REPORT INFORMATION
  Report Type: Spontaneous
  Country: US (occurrence: None)
  Receive Date: 20130927
  Receipt Date: 20130927
  Transmission Date: 20140515
  Serious: Yes (Other)
  Sender: FDA-Public Use
  Company Number: 1646448

PATIENT
  Age: 56 Year
  Sex: Female
  Weight: 100 kg

DRUGS (5)
  1. VANCOMYCIN HYDROCHLORIDE [Suspect]
     Indication: CELLULITIS
     Dosage: 2000 MG MILLIGRAM(S), 1 HOUR, INTRAVENOUS (NOT OTHERWISE SPECIFIED)
     Route: 042
     Dates: start: 20130215, end: 20130216
  2. VANCOMYCIN HYDROCHLORIDE [Suspect]
     Indication: CELLULITIS
     Dosage: 2000 MG MILLIGRAM(S), 1 HOUR, INTRAVENOUS (NOT OTHERWISE SPECIFIED)
     Route: 042
     Dates: start: 20130215, end: 20130216
  3. ZOSYN [Concomitant]
  4. KEFZOL [Concomitant]
  5. FENTANYL [Concomitant]

REACTIONS (1)
  - Renal failure acute [None]
